FAERS Safety Report 13889078 (Version 2)
Quarter: 2018Q1

REPORT INFORMATION
  Report Type: Spontaneous
  Country: CZ (occurrence: CZ)
  Receive Date: 20170821
  Receipt Date: 20180220
  Transmission Date: 20180508
  Serious: Yes (Hospitalization, Other)
  Sender: FDA-Public Use
  Company Number: CZ-IMPAX LABORATORIES, INC-2017-IPXL-02424

PATIENT
  Age: 61 Year

DRUGS (2)
  1. ANAGRELIDE HYDROCHLORIDE. [Suspect]
     Active Substance: ANAGRELIDE HYDROCHLORIDE
     Dosage: UNK; INCREASED DOSE
     Route: 065
  2. ANAGRELIDE HYDROCHLORIDE. [Suspect]
     Active Substance: ANAGRELIDE HYDROCHLORIDE
     Indication: ESSENTIAL THROMBOCYTHAEMIA
     Dosage: UNK
     Route: 065

REACTIONS (1)
  - Stress cardiomyopathy [Recovering/Resolving]
